FAERS Safety Report 9379375 (Version 1)
Quarter: 2013Q2

REPORT INFORMATION
  Report Type: Spontaneous
  Country: US (occurrence: None)
  Receive Date: 20130626
  Receipt Date: 20130626
  Transmission Date: 20140414
  Serious: Yes (Death, Other)
  Sender: FDA-Public Use
  Company Number: CABO-13002859

PATIENT
  Age: 76 Year
  Sex: Male
  Weight: 47.7 kg

DRUGS (2)
  1. COMETRIQ (CABOZANTINIB) CAPSULE [Suspect]
     Indication: MEDULLARY THYROID CANCER
     Route: 048
     Dates: start: 20130528, end: 20130612
  2. COMETRIQ (CABOZANTINIB) CAPSULE [Suspect]
     Indication: BONE CANCER
     Route: 048
     Dates: start: 20130528, end: 20130612

REACTIONS (7)
  - Malignant neoplasm progression [None]
  - Salmonella sepsis [None]
  - Failure to thrive [None]
  - Leukocytosis [None]
  - Hyponatraemia [None]
  - Hypovolaemia [None]
  - Medullary thyroid cancer [None]
